FAERS Safety Report 10332058 (Version 5)
Quarter: 2014Q3

REPORT INFORMATION
  Report Type: Spontaneous
  Country: US (occurrence: US)
  Receive Date: 20140722
  Receipt Date: 20140912
  Transmission Date: 20150326
  Serious: Yes (Hospitalization, Other)
  Sender: FDA-Public Use
  Company Number: US-INCYTE CORPORATION-2014IN001707

PATIENT
  Age: 73 Year
  Sex: Female

DRUGS (11)
  1. PHENAZOPYRIDINE. [Concomitant]
     Active Substance: PHENAZOPYRIDINE
  2. OXYCODONE [Concomitant]
     Active Substance: OXYCODONE
  3. ASPIRIN. [Concomitant]
     Active Substance: ASPIRIN
  4. JAKAFI [Suspect]
     Active Substance: RUXOLITINIB
     Dosage: 20 MG, BID
     Route: 048
     Dates: start: 20140611, end: 20140625
  5. JAKAFI [Suspect]
     Active Substance: RUXOLITINIB
     Dosage: 10 MG, BID
     Route: 048
     Dates: start: 201406, end: 2014
  6. NEXIUM [Concomitant]
     Active Substance: ESOMEPRAZOLE MAGNESIUM
  7. LANTUS [Concomitant]
     Active Substance: INSULIN GLARGINE
  8. XANAX [Concomitant]
     Active Substance: ALPRAZOLAM
  9. VITAMIN C [Concomitant]
     Active Substance: ASCORBIC ACID
  10. VITAMIN B12 [Concomitant]
     Active Substance: CYANOCOBALAMIN
  11. MULTIVITAMINS [Concomitant]
     Active Substance: VITAMINS

REACTIONS (6)
  - Constipation [Recovering/Resolving]
  - Blood pressure fluctuation [Recovering/Resolving]
  - Abdominal discomfort [Unknown]
  - Blood glucose fluctuation [Recovering/Resolving]
  - Malaise [Unknown]
  - Condition aggravated [Unknown]

NARRATIVE: CASE EVENT DATE: 20140616
